FAERS Safety Report 5851109-7 (Version None)
Quarter: 2008Q3

REPORT INFORMATION
  Report Type: 
  Country: None (occurrence: None)
  Receive Date: 20080820
  Receipt Date: 20080813
  Transmission Date: 20090109
  Serious: Yes (Other)
  Sender: FDA-Public Use
  Company Number: A0743353A

PATIENT
  Sex: Male

DRUGS (1)
  1. AVANDIA [Suspect]
     Indication: DRUG USE FOR UNKNOWN INDICATION
     Route: 065
     Dates: start: 20030601, end: 20070501

REACTIONS (3)
  - CORONARY ARTERY DISEASE [None]
  - DRUG INEFFECTIVE [None]
  - MYOCARDIAL INFARCTION [None]
